FAERS Safety Report 21613641 (Version 1)
Quarter: 2022Q4

REPORT INFORMATION
  Report Type: Report from Study
  Country: TR (occurrence: TR)
  Receive Date: 20221118
  Receipt Date: 20221118
  Transmission Date: 20230113
  Serious: Yes (Death)
  Sender: FDA-Public Use
  Company Number: TR-BIOGEN-2022BI01170272

PATIENT

DRUGS (1)
  1. SPINRAZA [Suspect]
     Active Substance: NUSINERSEN
     Indication: Product used for unknown indication
     Dosage: SPINRAZA 2.4 MG/ML INTRATEKAL ENJEKSIYON I?IN ??ZELTI I?EREN FLAKON (NUSINERSEN)
     Route: 050

REACTIONS (1)
  - Death [Fatal]
